FAERS Safety Report 9373047 (Version 1)
Quarter: 2013Q2

REPORT INFORMATION
  Report Type: Spontaneous
  Country: FI (occurrence: FI)
  Receive Date: 20130627
  Receipt Date: 20130627
  Transmission Date: 20140414
  Serious: Yes (Death)
  Sender: FDA-Public Use
  Company Number: FI-BAYER-2013-075420

PATIENT
  Age: 21 Year
  Sex: Female

DRUGS (1)
  1. YASMIN [Suspect]
     Dosage: UNK
     Route: 048
     Dates: start: 20100329

REACTIONS (5)
  - Sinus tachycardia [Fatal]
  - Hypotension [Fatal]
  - Vertigo [None]
  - Palpitations [None]
  - Nasopharyngitis [None]
